FAERS Safety Report 5575996-5 (Version None)
Quarter: 2007Q4

REPORT INFORMATION
  Report Type: 
  Country: None (occurrence: None)
  Receive Date: 20071228
  Receipt Date: 20071226
  Transmission Date: 20080405
  Serious: Yes (Life-Threatening, Hospitalization)
  Sender: FDA-Public Use
  Company Number: PHRM2007FR02879

PATIENT
  Age: 78 Year
  Sex: Female

DRUGS (5)
  1. VOLTAREN [Suspect]
     Route: 061
     Dates: start: 20070205, end: 20070213
  2. RENITEC                                 /NET/ [Suspect]
     Route: 048
     Dates: end: 20070213
  3. OMEPRAZOLE [Suspect]
     Dosage: 20 MG DAILY
     Route: 048
     Dates: end: 20070213
  4. HEXAQUINE [Suspect]
     Dosage: 1 DF, QD
     Dates: end: 20070213
  5. ATARAX [Suspect]
     Dosage: 25 MG, QD

REACTIONS (19)
  - ABDOMINAL RIGIDITY [None]
  - BLOOD BICARBONATE DECREASED [None]
  - BLOOD PH DECREASED [None]
  - DIVERTICULUM INTESTINAL [None]
  - FLUID REPLACEMENT [None]
  - GASTROINTESTINAL HAEMORRHAGE [None]
  - HYPOTENSION [None]
  - HYPOXIA [None]
  - INTUBATION [None]
  - LARGE INTESTINE PERFORATION [None]
  - METABOLIC ACIDOSIS [None]
  - PANCREATITIS ACUTE [None]
  - PCO2 INCREASED [None]
  - PERITONITIS [None]
  - PNEUMOPERITONEUM [None]
  - RENAL FAILURE [None]
  - SEPTIC SHOCK [None]
  - SUBILEUS [None]
  - SURGERY [None]
